FAERS Safety Report 8098840-3 (Version None)
Quarter: 2012Q1

REPORT INFORMATION
  Report Type: 
  Country: None (occurrence: None)
  Receive Date: 20120129
  Receipt Date: 20110922
  Transmission Date: 20120608
  Serious: No
  Sender: FDA-Public Use
  Company Number: US-ABBOTT-11P-163-0857505-00

PATIENT
  Sex: Female

DRUGS (20)
  1. SKELAXIN [Concomitant]
     Indication: PRODUCT USED FOR UNKNOWN INDICATION
  2. SOMA [Concomitant]
     Indication: PRODUCT USED FOR UNKNOWN INDICATION
  3. NORCO [Concomitant]
     Indication: PRODUCT USED FOR UNKNOWN INDICATION
  4. CYANOCOBALAMIN [Concomitant]
     Indication: PRODUCT USED FOR UNKNOWN INDICATION
  5. ASPIRIN [Concomitant]
     Indication: PRODUCT USED FOR UNKNOWN INDICATION
  6. NEXIUM [Concomitant]
     Indication: PRODUCT USED FOR UNKNOWN INDICATION
  7. ZYRTEC [Concomitant]
     Indication: PRODUCT USED FOR UNKNOWN INDICATION
  8. HUMIRA [Suspect]
     Indication: RHEUMATOID ARTHRITIS
     Dosage: UNDER SKIN
     Dates: start: 20101101
  9. OPANA [Concomitant]
     Indication: PRODUCT USED FOR UNKNOWN INDICATION
  10. VICODIN [Concomitant]
     Indication: PRODUCT USED FOR UNKNOWN INDICATION
  11. SINGULAIR [Concomitant]
     Indication: PRODUCT USED FOR UNKNOWN INDICATION
  12. LASIX [Concomitant]
     Indication: PRODUCT USED FOR UNKNOWN INDICATION
  13. COLCHICINE [Concomitant]
     Indication: PRODUCT USED FOR UNKNOWN INDICATION
  14. DIOVAN [Concomitant]
     Indication: PRODUCT USED FOR UNKNOWN INDICATION
  15. PAXIL CR [Concomitant]
     Indication: PRODUCT USED FOR UNKNOWN INDICATION
  16. ARAVA [Concomitant]
     Indication: PRODUCT USED FOR UNKNOWN INDICATION
  17. LIMBREL [Concomitant]
     Indication: PRODUCT USED FOR UNKNOWN INDICATION
  18. PLAQUENIL [Concomitant]
     Indication: PRODUCT USED FOR UNKNOWN INDICATION
  19. NORVASC [Concomitant]
     Indication: PRODUCT USED FOR UNKNOWN INDICATION
  20. PROVIGIL [Concomitant]
     Indication: PRODUCT USED FOR UNKNOWN INDICATION
     Dosage: IN THE MORNING

REACTIONS (3)
  - SWELLING [None]
  - PAIN IN EXTREMITY [None]
  - INJECTION SITE PAIN [None]
